FAERS Safety Report 7502492-8 (Version None)
Quarter: 2011Q2

REPORT INFORMATION
  Report Type: 
  Country: None (occurrence: None)
  Receive Date: 20110523
  Receipt Date: 20110523
  Transmission Date: 20111010
  Serious: Yes (Life-Threatening, Hospitalization, Other)
  Sender: FDA-Public Use
  Company Number: None

PATIENT
  Sex: Male
  Weight: 68 kg

DRUGS (1)
  1. LEVAQUIN [Suspect]
     Indication: URINARY TRACT INFECTION
     Dosage: 500 MG 5 DAYS
     Dates: start: 20101024, end: 20101029

REACTIONS (42)
  - HEADACHE [None]
  - NIPPLE DISORDER [None]
  - DYSPHONIA [None]
  - EYE PAIN [None]
  - MUSCULAR WEAKNESS [None]
  - DIZZINESS [None]
  - TENDON PAIN [None]
  - SLEEP DISORDER [None]
  - OROPHARYNGEAL PAIN [None]
  - NERVOUSNESS [None]
  - FOOD ALLERGY [None]
  - WEIGHT DECREASED [None]
  - COUGH [None]
  - DRY MOUTH [None]
  - FATIGUE [None]
  - STRESS [None]
  - DRY SKIN [None]
  - MYALGIA [None]
  - EYE IRRITATION [None]
  - NASAL DISCOMFORT [None]
  - DRUG HYPERSENSITIVITY [None]
  - FOOD INTOLERANCE [None]
  - MUSCLE SPASMS [None]
  - JOINT CREPITATION [None]
  - DECREASED APPETITE [None]
  - ARTHROPATHY [None]
  - TINNITUS [None]
  - DYSPHAGIA [None]
  - DRY THROAT [None]
  - ASTHENIA [None]
  - RESTLESS LEGS SYNDROME [None]
  - PRURITUS [None]
  - HYPOACUSIS [None]
  - TESTICULAR PAIN [None]
  - MUSCLE ATROPHY [None]
  - COORDINATION ABNORMAL [None]
  - FEELING ABNORMAL [None]
  - BURNING SENSATION [None]
  - PAIN [None]
  - VISUAL ACUITY REDUCED [None]
  - TEMPERATURE INTOLERANCE [None]
  - MUSCULOSKELETAL CHEST PAIN [None]
